FAERS Safety Report 23745497 (Version 2)
Quarter: 2024Q3

REPORT INFORMATION
  Report Type: Spontaneous
  Country: US (occurrence: US)
  Receive Date: 20240416
  Receipt Date: 20240726
  Transmission Date: 20241016
  Serious: No
  Sender: AMGEN
  Company Number: US-AMGEN-USASP2024073295

PATIENT
  Sex: Female

DRUGS (4)
  1. MVASI [Suspect]
     Active Substance: BEVACIZUMAB-AWWB
     Indication: Ovarian cancer
     Dosage: 400 MILLIGRAM
     Route: 065
     Dates: start: 20240110, end: 2024
  2. MVASI [Suspect]
     Active Substance: BEVACIZUMAB-AWWB
     Dosage: 100 MILLIGRAM
     Route: 065
     Dates: start: 2024, end: 2024
  3. MVASI [Suspect]
     Active Substance: BEVACIZUMAB-AWWB
     Dosage: (TOTAL DOSE 1300 MG : (3) 400 MG VIALS AND (1) 100 MG VIAL)
     Route: 065
     Dates: start: 2024, end: 2024
  4. MVASI [Suspect]
     Active Substance: BEVACIZUMAB-AWWB
     Dosage: (TOTAL DOSE 1300 MG : (3) 400 MG VIALS AND (1) 100 MG VIAL)
     Route: 065
     Dates: start: 2024

REACTIONS (2)
  - Fungal infection [Unknown]
  - Hypertension [Unknown]
